FAERS Safety Report 12605792 (Version 1)
Quarter: 2016Q3

REPORT INFORMATION
  Report Type: Spontaneous
  Country: US (occurrence: US)
  Receive Date: 20160729
  Receipt Date: 20160729
  Transmission Date: 20161109
  Serious: No
  Sender: FDA-Public Use
  Company Number: US-BAYER-2016-141138

PATIENT
  Sex: Female

DRUGS (1)
  1. BETASERON [Suspect]
     Active Substance: INTERFERON BETA-1B
     Dosage: UNK

REACTIONS (8)
  - Insomnia [None]
  - Anxiety [None]
  - Fatigue [None]
  - Headache [None]
  - Arthralgia [None]
  - Weight decreased [None]
  - Drug intolerance [None]
  - Depression [None]
